FAERS Safety Report 11321888 (Version 1)
Quarter: 2015Q3

REPORT INFORMATION
  Report Type: Spontaneous
  Country: US (occurrence: US)
  Receive Date: 20150729
  Receipt Date: 20150729
  Transmission Date: 20151125
  Serious: No
  Sender: FDA-Public Use
  Company Number: US-MYLANLABS-2015M1006796

PATIENT
  Sex: Female

DRUGS (1)
  1. HALOPERIDOL. [Suspect]
     Active Substance: HALOPERIDOL
     Indication: MIGRAINE
     Dosage: UNK

REACTIONS (1)
  - Tremor [Not Recovered/Not Resolved]
